FAERS Safety Report 9090097 (Version 3)
Quarter: 2013Q2

REPORT INFORMATION
  Report Type: Spontaneous
  Country: MX (occurrence: MX)
  Receive Date: 20130131
  Receipt Date: 20130426
  Transmission Date: 20140414
  Serious: Yes (Other)
  Sender: FDA-Public Use
  Company Number: MX-ELI_LILLY_AND_COMPANY-MX201301005696

PATIENT
  Age: 73 Year
  Sex: Female

DRUGS (17)
  1. FORTEO [Suspect]
     Dosage: 20 UG, QD
     Route: 058
     Dates: start: 20111012, end: 20121105
  2. ATACAND [Concomitant]
  3. DILATREND [Concomitant]
  4. FOLIVITAL [Concomitant]
  5. DIOSMIN W/HESPERIDIN [Concomitant]
  6. ATORVASTATIN [Concomitant]
  7. ZOLTUM                             /01263204/ [Concomitant]
  8. RIOPAN [Concomitant]
  9. DIMETICONE [Concomitant]
  10. OMEPRAZOLE [Concomitant]
  11. DICLOFENAC [Concomitant]
  12. DOLO-NERVOBION [Concomitant]
     Dosage: UNK
     Dates: start: 20120222
  13. ZALDIAR [Concomitant]
     Indication: ANALGESIC THERAPY
     Dosage: UNK
     Dates: start: 20120222
  14. LYRICA [Concomitant]
     Dosage: UNK
     Dates: start: 20120323
  15. ANARA [Concomitant]
  16. QUINFAMIDE [Concomitant]
     Dosage: UNK
     Dates: start: 20120830
  17. SUPRA [Concomitant]
     Dosage: UNK
     Dates: start: 20120830

REACTIONS (4)
  - Intestinal adenocarcinoma [Recovering/Resolving]
  - Metastases to liver [Recovering/Resolving]
  - Urinary bladder abscess [Unknown]
  - Cystitis noninfective [Unknown]
